FAERS Safety Report 8250450-0 (Version None)
Quarter: 2012Q2

REPORT INFORMATION
  Report Type: 
  Country: None (occurrence: None)
  Receive Date: 20120402
  Receipt Date: 20120319
  Transmission Date: 20120825
  Serious: Yes (Other)
  Sender: FDA-Public Use
  Company Number: US-ROCHE-1019488

PATIENT
  Sex: Female
  Weight: 45.4 kg

DRUGS (2)
  1. YASMIN [Concomitant]
     Indication: CONTRACEPTION
  2. ACCUTANE [Suspect]
     Indication: ACNE
     Dates: start: 20050101, end: 20060101

REACTIONS (6)
  - INFLAMMATORY BOWEL DISEASE [None]
  - IRRITABLE BOWEL SYNDROME [None]
  - SMALL INTESTINAL OBSTRUCTION [None]
  - ABSCESS INTESTINAL [None]
  - ILEITIS [None]
  - CROHN'S DISEASE [None]
